FAERS Safety Report 23931911 (Version 1)
Quarter: 2024Q2

REPORT INFORMATION
  Report Type: Spontaneous
  Country: IT (occurrence: IT)
  Receive Date: 20240603
  Receipt Date: 20240603
  Transmission Date: 20240716
  Serious: Yes (Other)
  Sender: FDA-Public Use
  Company Number: None

PATIENT
  Age: 76 Year
  Sex: Male

DRUGS (15)
  1. EYLEA [Suspect]
     Active Substance: AFLIBERCEPT
     Indication: Neovascular age-related macular degeneration
     Dosage: 1 DF,SOLUTION FOR INJECTION, 40MG/ML
     Route: 031
     Dates: start: 20220607, end: 20220607
  2. EYLEA [Suspect]
     Active Substance: AFLIBERCEPT
     Dosage: 1 DF,SOLUTION FOR INJECTION, 40MG/ML
     Route: 031
     Dates: start: 20220714, end: 20220714
  3. EYLEA [Suspect]
     Active Substance: AFLIBERCEPT
     Dosage: 1 DF,SOLUTION FOR INJECTION, 40MG/ML
     Route: 031
     Dates: start: 20220825, end: 20220825
  4. EYLEA [Suspect]
     Active Substance: AFLIBERCEPT
     Dosage: 1 DF,SOLUTION FOR INJECTION, 40MG/ML
     Route: 031
     Dates: start: 20221222, end: 20221222
  5. EYLEA [Suspect]
     Active Substance: AFLIBERCEPT
     Dosage: 1 DF,SOLUTION FOR INJECTION, 40MG/ML
     Route: 031
     Dates: start: 20230223, end: 20230223
  6. EYLEA [Suspect]
     Active Substance: AFLIBERCEPT
     Dosage: 1 DF,SOLUTION FOR INJECTION, 40MG/ML
     Route: 031
     Dates: start: 20230511, end: 20230511
  7. EYLEA [Suspect]
     Active Substance: AFLIBERCEPT
     Dosage: 1 DF,SOLUTION FOR INJECTION, 40MG/ML
     Route: 031
     Dates: start: 20230727, end: 20230727
  8. EYLEA [Suspect]
     Active Substance: AFLIBERCEPT
     Dosage: 1 DF,SOLUTION FOR INJECTION, 40MG/ML
     Route: 031
     Dates: start: 20231031, end: 20231031
  9. EYLEA [Suspect]
     Active Substance: AFLIBERCEPT
     Dosage: 1 DF,SOLUTION FOR INJECTION, 40MG/ML
     Route: 031
     Dates: start: 20240130, end: 20240130
  10. NITROGLYCERIN [Concomitant]
     Active Substance: NITROGLYCERIN
     Indication: Arteriosclerosis coronary artery
     Dosage: 1 G
     Route: 062
  11. SIMVASTATIN [Concomitant]
     Active Substance: SIMVASTATIN
     Indication: Hypercholesterolaemia
     Dosage: 20 MG
     Route: 048
  12. FOSINOPRIL SODIUM\HYDROCHLOROTHIAZIDE [Concomitant]
     Active Substance: FOSINOPRIL SODIUM\HYDROCHLOROTHIAZIDE
     Indication: Hypertension
     Dosage: 20 MG
     Route: 048
  13. ESOMEPRAZOLE [Concomitant]
     Active Substance: ESOMEPRAZOLE
     Indication: Prophylaxis against gastrointestinal ulcer
     Dosage: 20 MG
     Route: 048
  14. PIROXICAM [Concomitant]
     Active Substance: PIROXICAM
     Indication: Prophylaxis against gastrointestinal ulcer
     Dosage: 800 MG
     Route: 048
  15. TICLOPIDINA [TICLOPIDINE HYDROCHLORIDE] [Concomitant]
     Indication: Thrombosis prophylaxis
     Dosage: 20 MG
     Route: 048

REACTIONS (5)
  - Condition aggravated [Not Recovered/Not Resolved]
  - Retinal neovascularisation [Not Recovered/Not Resolved]
  - Subretinal fluid [Not Recovered/Not Resolved]
  - Retinal haemorrhage [Not Recovered/Not Resolved]
  - Therapeutic product effect decreased [Not Recovered/Not Resolved]

NARRATIVE: CASE EVENT DATE: 20240507
